FAERS Safety Report 15186273 (Version 1)
Quarter: 2018Q3

REPORT INFORMATION
  Report Type: Report from Study
  Country: US (occurrence: US)
  Receive Date: 20180723
  Receipt Date: 20180723
  Transmission Date: 20181010
  Serious: No
  Sender: FDA-Public Use
  Company Number: US-EXELIXIS-CABO-18011924

PATIENT
  Sex: Male

DRUGS (18)
  1. COMETRIQ [Suspect]
     Active Substance: CABOZANTINIB S-MALATE
     Indication: RENAL CANCER
     Dosage: 20 MG, QD
     Route: 048
     Dates: start: 20170517
  2. FLONASE [Concomitant]
     Active Substance: FLUTICASONE PROPIONATE
  3. LEVEMIR [Concomitant]
     Active Substance: INSULIN DETEMIR
  4. PLAVIX [Concomitant]
     Active Substance: CLOPIDOGREL BISULFATE
  5. METOPROLOL. [Concomitant]
     Active Substance: METOPROLOL
  6. AMLODIPINE [Concomitant]
     Active Substance: AMLODIPINE BESYLATE
  7. ZETIA [Concomitant]
     Active Substance: EZETIMIBE
  8. ASPIRIN. [Concomitant]
     Active Substance: ASPIRIN
  9. FISH OIL [Concomitant]
     Active Substance: FISH OIL
  10. NOVOLOG [Concomitant]
     Active Substance: INSULIN ASPART
  11. COMETRIQ [Suspect]
     Active Substance: CABOZANTINIB S-MALATE
     Indication: METASTASES TO CENTRAL NERVOUS SYSTEM
     Dosage: 60 MG, QD
     Route: 048
     Dates: start: 20171011
  12. CALCIUM ACETATE. [Concomitant]
     Active Substance: CALCIUM ACETATE
  13. DOCUSATE [Concomitant]
     Active Substance: DOCUSATE
  14. FAMOTIDINE. [Concomitant]
     Active Substance: FAMOTIDINE
  15. GABAPENTIN. [Concomitant]
     Active Substance: GABAPENTIN
  16. HYDRALAZINE [Concomitant]
     Active Substance: HYDRALAZINE HYDROCHLORIDE
  17. DILAUDID [Concomitant]
     Active Substance: HYDROMORPHONE HYDROCHLORIDE
  18. SIMVASTATIN. [Concomitant]
     Active Substance: SIMVASTATIN

REACTIONS (2)
  - Nasopharyngitis [Unknown]
  - Off label use [Unknown]
